FAERS Safety Report 7101472-4 (Version None)
Quarter: 2010Q4

REPORT INFORMATION
  Report Type: 
  Country: None (occurrence: None)
  Receive Date: 20101115
  Receipt Date: 20101103
  Transmission Date: 20110411
  Serious: Yes (Hospitalization, Other)
  Sender: FDA-Public Use
  Company Number: PHFR2010GB02049

PATIENT
  Sex: Male

DRUGS (3)
  1. CLOZARIL [Suspect]
     Dosage: 400 MG DAILY
     Route: 048
     Dates: start: 20021104
  2. OMEPRAZOLE [Concomitant]
     Dosage: 20 MG, PRN
     Dates: start: 20100601
  3. ADCAL [Concomitant]
     Dosage: 3000 MG, UNK
     Dates: start: 20101001

REACTIONS (5)
  - HODGKIN'S DISEASE STAGE II [None]
  - MEDIASTINAL MASS [None]
  - NEUTROPHIL COUNT INCREASED [None]
  - SUPERIOR VENA CAVAL OCCLUSION [None]
  - WHITE BLOOD CELL COUNT INCREASED [None]
